FAERS Safety Report 9076653 (Version 1)
Quarter: 2013Q1

REPORT INFORMATION
  Report Type: Report from Study
  Country: US (occurrence: US)
  Receive Date: 20130129
  Receipt Date: 20130129
  Transmission Date: 20140127
  Serious: No
  Sender: FDA-Public Use
  Company Number: US-ABBOTT-12P-163-0902421-00

PATIENT
  Age: 27 Year
  Sex: Female

DRUGS (15)
  1. HUMIRA 40 MG/0.8 ML PEN [Suspect]
     Indication: CROHN^S DISEASE
     Dates: start: 20110730
  2. HUMIRA 40 MG/0.8 ML PEN [Suspect]
     Dates: start: 20120207
  3. TIZANIDINE [Concomitant]
     Indication: MUSCLE SPASMS
     Dosage: AS NEEDED
  4. HYDROCODONE [Concomitant]
     Indication: PAIN
  5. CORTICOTROPIN [Concomitant]
     Indication: COLITIS
  6. OMEPRAZOLE [Concomitant]
     Indication: GASTRITIS
  7. HYOSCYAMINE [Concomitant]
     Indication: COLITIS
  8. MIRALAX [Concomitant]
     Indication: CONSTIPATION
  9. SAVELLA [Concomitant]
     Indication: FIBROMYALGIA
  10. SAVELLA [Concomitant]
  11. CYMBALTA [Concomitant]
     Indication: FIBROMYALGIA
  12. PREDNISONE [Concomitant]
     Indication: PRODUCT USED FOR UNKNOWN INDICATION
  13. 6MP [Concomitant]
     Indication: PRODUCT USED FOR UNKNOWN INDICATION
     Dates: end: 20120207
  14. 6MP [Concomitant]
     Dates: start: 20120207
  15. DOMPIERIDONE [Concomitant]
     Indication: PRODUCT USED FOR UNKNOWN INDICATION
     Dosage: 30 MINUTES BEFORE EACH MEAL AND BEDTIME

REACTIONS (12)
  - Drug ineffective [Not Recovered/Not Resolved]
  - Back pain [Not Recovered/Not Resolved]
  - Neck pain [Not Recovered/Not Resolved]
  - Neck mass [Not Recovered/Not Resolved]
  - Lymphadenopathy [Not Recovered/Not Resolved]
  - Infection [Not Recovered/Not Resolved]
  - Crohn^s disease [Not Recovered/Not Resolved]
  - Rectal haemorrhage [Not Recovered/Not Resolved]
  - Nausea [Not Recovered/Not Resolved]
  - Emergency care [Unknown]
  - Movement disorder [Unknown]
  - Cystitis [Unknown]
